FAERS Safety Report 9785508 (Version 1)
Quarter: 2013Q4

REPORT INFORMATION
  Report Type: Spontaneous
  Country: US (occurrence: None)
  Receive Date: 20131226
  Receipt Date: 20131226
  Transmission Date: 20140711
  Serious: Yes (Hospitalization)
  Sender: FDA-Public Use
  Company Number: None

PATIENT
  Age: 61 Year
  Sex: Female
  Weight: 73.03 kg

DRUGS (2)
  1. PREDNISONE [Suspect]
     Indication: BRONCHITIS
     Dosage: X 2 PILLS DECREASING FREQ TAKEN BY MOUTH
     Route: 048
     Dates: start: 20131213, end: 20131223
  2. ADULT GUMMY MULTIVITAMINS-MULTIVITAMIN/MULTIMINERAL SUPPLEMENT [Concomitant]

REACTIONS (5)
  - Swelling [None]
  - Headache [None]
  - Chest discomfort [None]
  - Blood pressure increased [None]
  - No therapeutic response [None]
